FAERS Safety Report 8010026-7 (Version None)
Quarter: 2011Q4

REPORT INFORMATION
  Report Type: 
  Country: None (occurrence: None)
  Receive Date: 20111221
  Receipt Date: 20111208
  Transmission Date: 20120403
  Serious: Yes (Hospitalization, Other)
  Sender: FDA-Public Use
  Company Number: JPI-P-018647

PATIENT
  Age: 33 Year
  Sex: Female
  Weight: 81.6475 kg

DRUGS (15)
  1. RIZATRIPTAN BENZOATE [Concomitant]
  2. VENLAFAXINE HCL [Concomitant]
  3. NORGESTIMATE AND ETHINYL ESTRADIOL [Concomitant]
  4. PROMETHAZINE [Concomitant]
  5. OMEPRAZOLE [Concomitant]
  6. DEXTROAMPHETAMINE [Concomitant]
  7. TOPIRAMATE [Suspect]
     Indication: MIGRAINE PROPHYLAXIS
     Dosage: (UNKNOWN)
     Dates: end: 20101201
  8. ARMODAFINIL [Concomitant]
  9. LIDOCAINE [Concomitant]
  10. DESLORATADINE [Concomitant]
  11. ALBUTEROL [Concomitant]
  12. ACYCLOVIR [Concomitant]
  13. ALPRAZOLAM [Concomitant]
  14. XYREM [Suspect]
     Indication: NARCOLEPSY
     Dosage: (UNKNOWN), ORAL 9 GM (4.5 GM, 2 IN 1 D), ORAL 4.5 GM (4.5 GM, 1 IN 1 D), ORAL
     Route: 048
     Dates: start: 20100217
  15. FLUTICASONE PROPIONATE [Concomitant]

REACTIONS (10)
  - AGGRESSION [None]
  - COMMUNICATION DISORDER [None]
  - FEELING OF DESPAIR [None]
  - SOMNOLENCE [None]
  - EMOTIONAL DISORDER [None]
  - MEMORY IMPAIRMENT [None]
  - PREGNANCY TEST POSITIVE [None]
  - MATERNAL EXPOSURE DURING PREGNANCY [None]
  - CONVULSION [None]
  - METABOLIC ACIDOSIS [None]
